FAERS Safety Report 4467040-8 (Version None)
Quarter: 2004Q3

REPORT INFORMATION
  Report Type: 
  Country: None (occurrence: None)
  Receive Date: 20040930
  Receipt Date: 20040923
  Transmission Date: 20050211
  Serious: Yes (Hospitalization)
  Sender: FDA-Public Use
  Company Number: 2004230078US

PATIENT
  Age: 52 Year
  Sex: Male

DRUGS (1)
  1. BEXTRA [Suspect]
     Indication: HEADACHE
     Dosage: PRN, ORAL
     Route: 048
     Dates: start: 20030509, end: 20030512

REACTIONS (4)
  - BRAIN NEOPLASM [None]
  - CONVULSION [None]
  - MENINGIOMA BENIGN [None]
  - UPPER LIMB FRACTURE [None]
